FAERS Safety Report 7466077-4 (Version None)
Quarter: 2011Q2

REPORT INFORMATION
  Report Type: 
  Country: None (occurrence: None)
  Receive Date: 20110509
  Receipt Date: 20100611
  Transmission Date: 20111010
  Serious: No
  Sender: FDA-Public Use
  Company Number: US-ALEXION-A201000679

PATIENT
  Sex: Male

DRUGS (8)
  1. SOLIRIS [Suspect]
     Indication: PAROXYSMAL NOCTURNAL HAEMOGLOBINURIA
     Dosage: 900 MG, Q2W
     Route: 042
  2. ATROVENT [Concomitant]
     Dosage: 1-2 SPRAYS QID,PRN
  3. VITAMIN B12                        /00056201/ [Concomitant]
     Indication: SUPPLEMENTATION THERAPY
     Dosage: 1000 MCG, QD
     Route: 048
  4. COENZYME Q10 [Concomitant]
     Dosage: 10 MG, QD
     Route: 048
  5. MULTI-VITAMINS [Concomitant]
     Indication: SUPPLEMENTATION THERAPY
     Dosage: 1 QD
     Route: 048
  6. VITAMIN A [Concomitant]
     Dosage: 50000 IU, WEEKLY
     Route: 048
  7. MOTRIN [Concomitant]
     Dosage: UNK
     Route: 048
  8. FOLIC ACID [Concomitant]
     Dosage: 1 MG, QD
     Route: 048

REACTIONS (1)
  - OESOPHAGEAL SPASM [None]
